FAERS Safety Report 26183023 (Version 1)
Quarter: 2025Q4

REPORT INFORMATION
  Report Type: Spontaneous
  Country: EU (occurrence: EU)
  Receive Date: 20251221
  Receipt Date: 20251221
  Transmission Date: 20260117
  Serious: Yes (Hospitalization, Other)
  Sender: SANDOZ
  Company Number: EU-SANDOZ-SDZ2025PL094978

PATIENT
  Age: 52 Year
  Sex: Male
  Weight: 103 kg

DRUGS (1)
  1. ETANERCEPT [Suspect]
     Active Substance: ETANERCEPT
     Indication: Ankylosing spondylitis
     Dosage: UNK

REACTIONS (3)
  - Dilated cardiomyopathy [Recovering/Resolving]
  - Ankylosing spondylitis [Recovering/Resolving]
  - Cardiac failure [Recovering/Resolving]

NARRATIVE: CASE EVENT DATE: 20210401
